FAERS Safety Report 6293849-4 (Version None)
Quarter: 2009Q3

REPORT INFORMATION
  Report Type: 
  Country: None (occurrence: None)
  Receive Date: 20090731
  Receipt Date: 20090731
  Transmission Date: 20100115
  Serious: No
  Sender: FDA-Public Use
  Company Number: None

PATIENT

DRUGS (2)
  1. LAMOTRIGINE [Suspect]
     Dosage: 100MG, DAILY, PO
     Route: 048
     Dates: start: 20081001, end: 20081119
  2. LAMOTRIGINE [Suspect]
     Dosage: 150MG, DAILY, PO
     Route: 048
     Dates: start: 20081001, end: 20081119

REACTIONS (4)
  - ANXIETY [None]
  - DYSPHORIA [None]
  - PRODUCT SUBSTITUTION ISSUE [None]
  - TREMOR [None]
